FAERS Safety Report 8248112-9 (Version None)
Quarter: 2012Q1

REPORT INFORMATION
  Report Type: 
  Country: None (occurrence: None)
  Receive Date: 20120330
  Receipt Date: 20120323
  Transmission Date: 20120608
  Serious: Yes (Other)
  Sender: FDA-Public Use
  Company Number: US-BAYER-2012-028935

PATIENT
  Age: 28 Year
  Sex: Female

DRUGS (2)
  1. YAZ [Suspect]
  2. AZITHROMYCIN [Concomitant]
     Dosage: 250 MG, UNK
     Route: 048
     Dates: start: 20100219

REACTIONS (1)
  - DEEP VEIN THROMBOSIS [None]
